FAERS Safety Report 8352260-2 (Version None)
Quarter: 2012Q2

REPORT INFORMATION
  Report Type: 
  Country: None (occurrence: None)
  Receive Date: 20120511
  Receipt Date: 20120504
  Transmission Date: 20120825
  Serious: Yes (Other)
  Sender: FDA-Public Use
  Company Number: US-JNJFOC-20120506765

PATIENT
  Sex: Male

DRUGS (2)
  1. STELARA [Suspect]
     Dosage: FREQUENCY OF THE TREATMENT UNSPECIFIED
     Route: 058
  2. STELARA [Suspect]
     Indication: PSORIASIS
     Route: 058
     Dates: start: 20100701

REACTIONS (3)
  - ARTHRITIS [None]
  - PSORIASIS [None]
  - ANEURYSM [None]
